FAERS Safety Report 7276416-5 (Version None)
Quarter: 2011Q1

REPORT INFORMATION
  Report Type: 
  Country: None (occurrence: None)
  Receive Date: 20110204
  Receipt Date: 20110131
  Transmission Date: 20110831
  Serious: Yes (Other)
  Sender: FDA-Public Use
  Company Number: US-SANOFI-AVENTIS-2010SA075913

PATIENT
  Age: 61 Year
  Sex: Female

DRUGS (2)
  1. SOLOSTAR [Suspect]
     Dates: start: 20090101
  2. APIDRA [Suspect]
     Dosage: 10- 12 UNITS THREE TIMES A DAY
     Route: 058
     Dates: start: 20090101

REACTIONS (5)
  - BLOOD GLUCOSE INCREASED [None]
  - MALAISE [None]
  - PRODUCT QUALITY ISSUE [None]
  - HYPERGLYCAEMIA [None]
  - HEADACHE [None]
